FAERS Safety Report 7169485-4 (Version None)
Quarter: 2010Q4

REPORT INFORMATION
  Report Type: 
  Country: None (occurrence: None)
  Receive Date: 20101217
  Receipt Date: 20101207
  Transmission Date: 20110411
  Serious: Yes (Hospitalization)
  Sender: FDA-Public Use
  Company Number: US-BIOGENIDEC-2010BI043303

PATIENT
  Age: 55 Year
  Sex: Female

DRUGS (2)
  1. AVONEX [Suspect]
     Indication: MULTIPLE SCLEROSIS
     Route: 030
     Dates: start: 20071201
  2. MEDICATION (NOS) [Concomitant]
     Indication: PALPITATIONS

REACTIONS (8)
  - CLOSTRIDIAL INFECTION [None]
  - DEHYDRATION [None]
  - LOSS OF CONSCIOUSNESS [None]
  - MULTIPLE SCLEROSIS RELAPSE [None]
  - OEDEMA [None]
  - PALPITATIONS [None]
  - SWELLING FACE [None]
  - TYPE 2 DIABETES MELLITUS [None]
